FAERS Safety Report 10047745 (Version 3)
Quarter: 2014Q2

REPORT INFORMATION
  Report Type: Spontaneous
  Country: US (occurrence: US)
  Receive Date: 20140331
  Receipt Date: 20140527
  Transmission Date: 20141212
  Serious: Yes (Hospitalization)
  Sender: FDA-Public Use
  Company Number: US-UCBSA-111479

PATIENT
  Age: 60 Year
  Sex: Male
  Weight: 63 kg

DRUGS (17)
  1. CIMZIA [Suspect]
     Indication: CROHN^S DISEASE
     Route: 058
     Dates: start: 20131120, end: 20140311
  2. CIMZIA [Suspect]
     Indication: RHEUMATOID ARTHRITIS
     Route: 058
     Dates: start: 20131120, end: 20140311
  3. LISINOPRIL [Suspect]
     Indication: HYPERTENSION
     Route: 048
  4. ACETAMINOPHEN [Concomitant]
     Dosage: TWO TABLETS AT ONE TIME, DO NOT EXCEED 3000MG PER DAY
     Route: 048
  5. FOLIC ACID [Concomitant]
     Route: 048
  6. HYDROCORTISONE ACETATE [Concomitant]
     Dosage: 25MG RTL
     Route: 054
  7. ONDANSETRON [Concomitant]
     Dosage: 2MG/ML INJECTION, 4MG/2 ML ONE TIME
     Route: 042
  8. POLYETHYLENE GLYCOL [Concomitant]
     Indication: CONSTIPATION
     Route: 048
  9. SILDENAFIL CITRATE [Concomitant]
     Dosage: 100MG TABLET
  10. SODIUM CHLORIDE [Concomitant]
     Indication: NASAL DRYNESS
  11. MERCAPTOPURINE [Concomitant]
     Indication: OSTEOPOROSIS
     Route: 048
     Dates: start: 2005
  12. MERCAPTOPURINE [Concomitant]
     Indication: ARTHRITIS ENTEROPATHIC
     Route: 048
     Dates: start: 2005
  13. VITAMIN D3 [Concomitant]
     Dosage: 2000UNITS
     Route: 048
  14. CALCIUM/VITAMIN D [Concomitant]
     Dosage: 600MG, 400UNITS
     Route: 048
  15. MULTI VITAMIN/MINERALS [Concomitant]
     Route: 048
  16. BACTRIM [Concomitant]
  17. TAMSULOSIN [Concomitant]
     Dosage: 0.4MG
     Route: 048

REACTIONS (14)
  - Pancreatitis [Recovered/Resolved]
  - Pyelonephritis [Recovered/Resolved]
  - Urinary tract infection [Recovered/Resolved]
  - Back pain [Recovered/Resolved]
  - Prostatomegaly [Recovered/Resolved]
  - Blood creatine increased [Unknown]
  - Epistaxis [Recovered/Resolved]
  - Headache [Recovered/Resolved]
  - Nasal neoplasm [Recovering/Resolving]
  - Night sweats [Recovered/Resolved]
  - Abdominal pain [Recovered/Resolved]
  - Rhinorrhoea [Recovered/Resolved]
  - Nasal congestion [Recovered/Resolved]
  - Pollakiuria [Recovered/Resolved]
